FAERS Safety Report 17679133 (Version 2)
Quarter: 2020Q3

REPORT INFORMATION
  Report Type: Spontaneous
  Country: US (occurrence: US)
  Receive Date: 20200417
  Receipt Date: 20200914
  Transmission Date: 20201102
  Serious: Yes (Other)
  Sender: FDA-Public Use
  Company Number: US-GILEAD-2020-0459235

PATIENT
  Age: 48 Year
  Sex: Male
  Weight: 81.63 kg

DRUGS (18)
  1. VIREAD [Suspect]
     Active Substance: TENOFOVIR DISOPROXIL FUMARATE
     Indication: HIV INFECTION
     Dosage: UNK
     Route: 048
     Dates: start: 200601, end: 201003
  2. COMBIVIR [Concomitant]
     Active Substance: LAMIVUDINE\ZIDOVUDINE
  3. INTELENCE [Concomitant]
     Active Substance: ETRAVIRINE
  4. NORVIR [Concomitant]
     Active Substance: RITONAVIR
  5. PREZISTA [Concomitant]
     Active Substance: DARUNAVIR ETHANOLATE
  6. RETROVIR [Concomitant]
     Active Substance: ZIDOVUDINE
  7. VIDEX [Concomitant]
     Active Substance: DIDANOSINE
  8. VIRACEPT [Concomitant]
     Active Substance: NELFINAVIR MESYLATE
  9. CRIXIVAN [Concomitant]
     Active Substance: INDINAVIR SULFATE
  10. EPIVIR [Concomitant]
     Active Substance: LAMIVUDINE
  11. LOSARTAN. [Concomitant]
     Active Substance: LOSARTAN
  12. GENVOYA [Concomitant]
     Active Substance: COBICISTAT\ELVITEGRAVIR\EMTRICITABINE\TENOFOVIR ALAFENAMIDE FUMARATE
  13. TIVICAY [Concomitant]
     Active Substance: DOLUTEGRAVIR SODIUM
  14. LEXIVA [Concomitant]
     Active Substance: FOSAMPRENAVIR CALCIUM
  15. VIRAMUNE [Concomitant]
     Active Substance: NEVIRAPINE
  16. ATORVASTATIN [Concomitant]
     Active Substance: ATORVASTATIN
  17. TRUVADA [Suspect]
     Active Substance: EMTRICITABINE\TENOFOVIR DISOPROXIL FUMARATE
     Indication: HIV INFECTION
     Dosage: UNK
     Route: 048
     Dates: start: 201003, end: 201309
  18. SUSTIVA [Concomitant]
     Active Substance: EFAVIRENZ

REACTIONS (7)
  - Anxiety [Not Recovered/Not Resolved]
  - Anhedonia [Not Recovered/Not Resolved]
  - Osteopenia [Not Recovered/Not Resolved]
  - Pain [Not Recovered/Not Resolved]
  - Emotional distress [Not Recovered/Not Resolved]
  - Economic problem [Unknown]
  - Renal failure [Not Recovered/Not Resolved]

NARRATIVE: CASE EVENT DATE: 2011
